FAERS Safety Report 8728576 (Version 4)
Quarter: 2012Q4

REPORT INFORMATION
  Report Type: Report from Study
  Country: JP (occurrence: JP)
  Receive Date: 20120817
  Receipt Date: 20121102
  Transmission Date: 20130627
  Serious: Yes (Death, Hospitalization, Other)
  Sender: FDA-Public Use
  Company Number: JP-ASTELLAS-2012US006983

PATIENT
  Age: 67 Year
  Sex: Female
  Weight: 47 kg

DRUGS (4)
  1. ERLOTINIB TABLET [Suspect]
     Indication: ADENOCARCINOMA PANCREAS
     Dosage: 100 mg, UID/QD
     Route: 048
     Dates: start: 20120524, end: 20120619
  2. GEMCITABINE HYDROCHLORIDE [Suspect]
     Indication: ADENOCARCINOMA PANCREAS
     Dosage: 1000 mg/m2, UID/QD
     Route: 041
     Dates: start: 20120524, end: 20120524
  3. GEMCITABINE HYDROCHLORIDE [Suspect]
     Dosage: 1000 mg/m2, UID/QD
     Route: 041
     Dates: start: 20120607, end: 20120607
  4. GEMCITABINE HYDROCHLORIDE [Suspect]
     Dosage: 1000 mg/m2, UID/QD
     Route: 041
     Dates: start: 20120705, end: 20120705

REACTIONS (10)
  - Neutrophil count decreased [Recovered/Resolved]
  - Adenocarcinoma pancreas [Fatal]
  - Malaise [Recovered/Resolved]
  - Amylase increased [Unknown]
  - Blood lactate dehydrogenase increased [Unknown]
  - Hyperbilirubinaemia [Recovered/Resolved]
  - Aspartate aminotransferase increased [Unknown]
  - Alanine aminotransferase increased [Unknown]
  - Gamma-glutamyltransferase increased [Unknown]
  - Blood alkaline phosphatase increased [Unknown]
